FAERS Safety Report 22232978 (Version 7)
Quarter: 2023Q4

REPORT INFORMATION
  Report Type: Spontaneous
  Country: US (occurrence: US)
  Receive Date: 20230420
  Receipt Date: 20231005
  Transmission Date: 20240110
  Serious: Yes (Other)
  Sender: FDA-Public Use
  Company Number: US-BRISTOL-MYERS SQUIBB COMPANY-2023-054419

PATIENT
  Age: 76 Year
  Sex: Male

DRUGS (2)
  1. REVLIMID [Suspect]
     Active Substance: LENALIDOMIDE
     Indication: Plasma cell myeloma
     Dosage: TAKE 1 CAPSULE BY MOUTH EVERY DAY FOR 21 DAYS OUT OF A 28 DAY
     Route: 048
     Dates: start: 20230320
  2. REVLIMID [Suspect]
     Active Substance: LENALIDOMIDE
     Dosage: 1 CAPSULE BY MOUTH ONCE DAILY
     Route: 048

REACTIONS (6)
  - Ageusia [Not Recovered/Not Resolved]
  - Full blood count decreased [Recovered/Resolved]
  - Renal impairment [Recovered/Resolved]
  - Dry mouth [Recovered/Resolved]
  - Tongue ulceration [Recovering/Resolving]
  - Drug ineffective [Recovering/Resolving]
